FAERS Safety Report 25006839 (Version 2)
Quarter: 2025Q1

REPORT INFORMATION
  Report Type: Spontaneous
  Country: IN (occurrence: IN)
  Receive Date: 20250225
  Receipt Date: 20250227
  Transmission Date: 20250408
  Serious: Yes (Other)
  Sender: NOVARTIS
  Company Number: IN-SANDOZ-SDZ2025IN010997

PATIENT
  Age: 29 Year
  Sex: Male

DRUGS (4)
  1. TACROLIMUS [Suspect]
     Active Substance: TACROLIMUS
     Indication: Renal transplant
     Dosage: 6 MG, QD (3 MG, BID)
     Route: 048
  2. TACROLIMUS [Suspect]
     Active Substance: TACROLIMUS
     Dosage: 6 MG, QD, QD (3 MG, BID)
     Route: 048
  3. MYFORTIC [Suspect]
     Active Substance: MYCOPHENOLATE SODIUM
     Indication: Renal transplant
     Dosage: 1440 MG, QD (360 MG, QID)
     Route: 048
  4. MYFORTIC [Suspect]
     Active Substance: MYCOPHENOLATE SODIUM
     Dosage: 1440 MG, QD (360 MG, (FOUR TIMES A DAY))
     Route: 048

REACTIONS (5)
  - Liver disorder [Unknown]
  - Haemorrhage [Unknown]
  - Hypertension [Unknown]
  - Gastric antral vascular ectasia [Unknown]
  - Arteriovenous fistula [Unknown]

NARRATIVE: CASE EVENT DATE: 20241205
